FAERS Safety Report 10006051 (Version 8)
Quarter: 2014Q2

REPORT INFORMATION
  Report Type: Spontaneous
  Country: US (occurrence: US)
  Receive Date: 20140313
  Receipt Date: 20140602
  Transmission Date: 20141212
  Serious: Yes (Life-Threatening, Hospitalization, Disabling)
  Sender: FDA-Public Use
  Company Number: US-JNJFOC-20140306529

PATIENT
  Age: 89 Year
  Sex: Female
  Weight: 66.68 kg

DRUGS (7)
  1. XARELTO [Suspect]
     Indication: CEREBROVASCULAR ACCIDENT PROPHYLAXIS
     Route: 048
     Dates: start: 20130830, end: 20130904
  2. XARELTO [Suspect]
     Indication: ATRIAL FIBRILLATION
     Route: 048
     Dates: start: 20130830, end: 20130904
  3. ASPIRIN [Suspect]
     Indication: CARDIAC FAILURE CONGESTIVE
     Route: 065
  4. COREG [Concomitant]
     Indication: CARDIAC FAILURE CONGESTIVE
     Route: 065
  5. IMDUR [Concomitant]
     Route: 065
  6. LISINOPRIL [Concomitant]
     Indication: CARDIAC FAILURE CONGESTIVE
     Route: 065
  7. AMARYL [Concomitant]
     Indication: DIABETES MELLITUS
     Route: 065

REACTIONS (13)
  - Blindness [Not Recovered/Not Resolved]
  - Deafness [Not Recovered/Not Resolved]
  - Loss of consciousness [Unknown]
  - Contusion [Unknown]
  - Glaucoma [Unknown]
  - Pruritus [Unknown]
  - Muscle disorder [Not Recovered/Not Resolved]
  - Confusional state [Unknown]
  - Skin lesion [Unknown]
  - Pain [Unknown]
  - Oral disorder [Unknown]
  - Delusion [Unknown]
  - Aggression [Unknown]
